FAERS Safety Report 4928923-5 (Version None)
Quarter: 2006Q1

REPORT INFORMATION
  Report Type: 
  Country: None (occurrence: None)
  Receive Date: 20060301
  Receipt Date: 20060222
  Transmission Date: 20060701
  Serious: Yes (Hospitalization)
  Sender: FDA-Public Use
  Company Number: CA-JNJFOC-20051005607

PATIENT
  Sex: Male

DRUGS (2)
  1. TRAMACET [Suspect]
     Dosage: 2 TABLETS EVERY 4-6 HOURS
  2. TYLENOL W/ CODEINE NO. 3 [Concomitant]

REACTIONS (6)
  - COORDINATION ABNORMAL [None]
  - DIZZINESS [None]
  - DYSARTHRIA [None]
  - HEADACHE [None]
  - HEART RATE DECREASED [None]
  - HYPOAESTHESIA [None]
